FAERS Safety Report 7603109-4 (Version None)
Quarter: 2011Q3

REPORT INFORMATION
  Report Type: 
  Country: None (occurrence: None)
  Receive Date: 20110712
  Receipt Date: 20110708
  Transmission Date: 20111222
  Serious: Yes (Other)
  Sender: FDA-Public Use
  Company Number: US-PFIZER INC-2011154590

PATIENT
  Sex: Female
  Weight: 90.7 kg

DRUGS (4)
  1. LORAZEPAM [Concomitant]
     Dosage: UNK
  2. GABAPENTIN [Suspect]
     Indication: PAIN
     Dosage: 300 MG, 1X/DAY
     Route: 048
  3. ALLEGRA [Concomitant]
     Dosage: UNK
  4. MONTELUKAST [Concomitant]
     Dosage: UNK

REACTIONS (2)
  - GINGIVAL SWELLING [None]
  - GINGIVAL INFECTION [None]
